FAERS Safety Report 8882484 (Version 1)
Quarter: 2012Q4

REPORT INFORMATION
  Report Type: 
  Country: US (occurrence: US)
  Receive Date: 20121105
  Receipt Date: 20121105
  Transmission Date: 20130627
  Serious: Yes (Other)
  Sender: FDA-Public Use
  Company Number: US-JNJFOC-20121016668

PATIENT
  Age: 28 Year
  Sex: Female

DRUGS (3)
  1. REMICADE [Suspect]
     Indication: COLITIS ULCERATIVE
     Route: 042
  2. BUDESONIDE [Concomitant]
     Route: 065
  3. BUDESONIDE [Concomitant]
     Route: 065

REACTIONS (3)
  - Paraesthesia [Not Recovered/Not Resolved]
  - Expressive language disorder [Not Recovered/Not Resolved]
  - Sensory disturbance [Not Recovered/Not Resolved]
